FAERS Safety Report 25078238 (Version 2)
Quarter: 2025Q1

REPORT INFORMATION
  Report Type: Spontaneous
  Country: DE (occurrence: DE)
  Receive Date: 20250314
  Receipt Date: 20250321
  Transmission Date: 20250409
  Serious: Yes (Other)
  Sender: AUROBINDO
  Company Number: DE-AUROBINDO-AUR-APL-2025-012698

PATIENT
  Age: 55 Year
  Sex: Female
  Weight: 134 kg

DRUGS (23)
  1. DULOXETINE [Suspect]
     Active Substance: DULOXETINE
     Indication: Mood altered
     Dosage: 60 MILLIGRAM, ONCE A DAY
     Route: 065
  2. DULOXETINE [Suspect]
     Active Substance: DULOXETINE
     Indication: Depression
  3. LAMOTRIGINE [Suspect]
     Active Substance: LAMOTRIGINE
     Indication: Mood altered
     Route: 065
  4. LAMOTRIGINE [Suspect]
     Active Substance: LAMOTRIGINE
     Indication: Depression
     Dosage: 200 MILLIGRAM, ONCE A DAY (2.8 ?G/ML)
     Route: 065
  5. MIRTAZAPINE [Suspect]
     Active Substance: MIRTAZAPINE
     Indication: Depression
     Dosage: 45 MILLIGRAM, ONCE A DAY
     Route: 065
  6. MIRTAZAPINE [Suspect]
     Active Substance: MIRTAZAPINE
     Indication: Mood altered
  7. SERTRALINE [Suspect]
     Active Substance: SERTRALINE HYDROCHLORIDE
     Indication: Depression
     Dosage: TITRATED TO A DOSE OF 150 MG/D
     Route: 065
  8. SERTRALINE [Suspect]
     Active Substance: SERTRALINE HYDROCHLORIDE
     Indication: Mood altered
  9. VENLAFAXINE [Suspect]
     Active Substance: VENLAFAXINE HYDROCHLORIDE
     Indication: Mood altered
     Dosage: 300 MILLIGRAM, ONCE A DAY
     Route: 065
  10. VENLAFAXINE [Suspect]
     Active Substance: VENLAFAXINE HYDROCHLORIDE
     Indication: Depression
  11. AMITRIPTYLINE [Suspect]
     Active Substance: AMITRIPTYLINE
     Indication: Mood altered
     Dosage: 100 MILLIGRAM, ONCE A DAY
     Route: 065
  12. AMITRIPTYLINE [Suspect]
     Active Substance: AMITRIPTYLINE
     Indication: Depression
     Route: 065
  13. NORTRIPTYLINE [Suspect]
     Active Substance: NORTRIPTYLINE
     Indication: Mood altered
     Route: 065
  14. NORTRIPTYLINE [Suspect]
     Active Substance: NORTRIPTYLINE
     Indication: Depression
  15. AGOMELATINE [Suspect]
     Active Substance: AGOMELATINE
     Indication: Depression
     Dosage: 50 MILLIGRAM, ONCE A DAY
     Route: 065
  16. AGOMELATINE [Suspect]
     Active Substance: AGOMELATINE
     Indication: Mood altered
  17. LITHIUM [Suspect]
     Active Substance: LITHIUM
     Indication: Depression
     Route: 065
  18. LITHIUM [Suspect]
     Active Substance: LITHIUM
     Indication: Mood altered
  19. UNSPECIFIED INGREDIENT [Suspect]
     Active Substance: UNSPECIFIED INGREDIENT
     Indication: Depression
     Route: 065
  20. UNSPECIFIED INGREDIENT [Suspect]
     Active Substance: UNSPECIFIED INGREDIENT
     Indication: Mood altered
  21. Jatrosom [Concomitant]
     Indication: Depression
     Route: 065
  22. TRAZODONE [Concomitant]
     Active Substance: TRAZODONE HYDROCHLORIDE
     Indication: Depression
     Dosage: 175 MILLIGRAM, ONCE A DAY
     Route: 065
  23. PIPAMPERONE [Concomitant]
     Active Substance: PIPAMPERONE
     Indication: Depression
     Dosage: 80 MILLIGRAM, ONCE A DAY
     Route: 065

REACTIONS (3)
  - Chronic kidney disease [Unknown]
  - Depression [Unknown]
  - Drug ineffective [Unknown]
